FAERS Safety Report 15969740 (Version 1)
Quarter: 2019Q1

REPORT INFORMATION
  Report Type: Spontaneous
  Country: US (occurrence: US)
  Receive Date: 20190215
  Receipt Date: 20190215
  Transmission Date: 20190418
  Serious: No
  Sender: FDA-Public Use
  Company Number: US-ELI_LILLY_AND_COMPANY-US201901013141

PATIENT
  Age: 39 Year
  Sex: Female

DRUGS (2)
  1. HUMULIN R [Suspect]
     Active Substance: INSULIN HUMAN
     Dosage: 75 TO 80 U BY BASAL RATE AND CARBS, DAILY
     Route: 058
     Dates: start: 20180103, end: 20190124
  2. HUMULIN R [Suspect]
     Active Substance: INSULIN HUMAN
     Indication: TYPE 2 DIABETES MELLITUS
     Dosage: 75 TO 80 U BY BASAL RATE AND CARBS, DAILY
     Route: 058
     Dates: start: 201809

REACTIONS (4)
  - Maternal exposure during pregnancy [Unknown]
  - Injection site pain [Not Recovered/Not Resolved]
  - Blood glucose increased [Not Recovered/Not Resolved]
  - Wrong technique in product usage process [Unknown]

NARRATIVE: CASE EVENT DATE: 20190104
